FAERS Safety Report 13149087 (Version 1)
Quarter: 2017Q1

REPORT INFORMATION
  Report Type: Spontaneous
  Country: US (occurrence: US)
  Receive Date: 20170124
  Receipt Date: 20170124
  Transmission Date: 20170428
  Serious: Yes (Other)
  Sender: FDA-Public Use
  Company Number: None

PATIENT
  Age: 84 Year
  Sex: Male

DRUGS (1)
  1. PRALUENT [Suspect]
     Active Substance: ALIROCUMAB
     Indication: BLOOD CHOLESTEROL INCREASED
     Dosage: 75MG EVERY 2 WEEKS UNDER THE SKIN
     Dates: start: 20161231, end: 20170114

REACTIONS (2)
  - Influenza like illness [None]
  - Pruritus [None]

NARRATIVE: CASE EVENT DATE: 20170114
